FAERS Safety Report 5615677-2 (Version None)
Quarter: 2008Q1

REPORT INFORMATION
  Report Type: 
  Country: None (occurrence: None)
  Receive Date: 20080206
  Receipt Date: 20080131
  Transmission Date: 20080703
  Serious: Yes (Other)
  Sender: FDA-Public Use
  Company Number: ES-MERCK-0802ESP00001

PATIENT
  Age: 4 Year
  Sex: Male

DRUGS (2)
  1. SINGULAIR [Suspect]
     Indication: ASTHMA
     Route: 048
     Dates: start: 20070101, end: 20070101
  2. SINGULAIR [Suspect]
     Route: 048
     Dates: start: 20071001, end: 20071001

REACTIONS (4)
  - ANOREXIA [None]
  - APATHY [None]
  - ASTHMATIC CRISIS [None]
  - FATIGUE [None]
